FAERS Safety Report 7125757-0 (Version None)
Quarter: 2010Q4

REPORT INFORMATION
  Report Type: 
  Country: None (occurrence: None)
  Receive Date: 20101129
  Receipt Date: 20101115
  Transmission Date: 20110411
  Serious: Yes (Other)
  Sender: FDA-Public Use
  Company Number: B0684584A

PATIENT
  Sex: Female

DRUGS (2)
  1. ZIAGEN [Suspect]
     Indication: HIV INFECTION
     Route: 065
  2. ANTIRETROVIRAL MEDICATIONS [Concomitant]
     Indication: HIV INFECTION
     Route: 065

REACTIONS (1)
  - PORTAL HYPERTENSION [None]
